FAERS Safety Report 9899351 (Version 1)
Quarter: 2014Q1

REPORT INFORMATION
  Report Type: Spontaneous
  Country: ES (occurrence: ES)
  Receive Date: 20140214
  Receipt Date: 20140214
  Transmission Date: 20141002
  Serious: Yes (Other)
  Sender: FDA-Public Use
  Company Number: ES-INCYTE CORPORATION-2014IN000315

PATIENT
  Age: 61 Year
  Sex: Male

DRUGS (1)
  1. INC424 [Suspect]
     Dosage: 20 MG, 12 HOUR
     Route: 065
     Dates: start: 201206

REACTIONS (5)
  - Epistaxis [Recovering/Resolving]
  - Herpes zoster [Recovering/Resolving]
  - White blood cell count increased [Recovering/Resolving]
  - Gamma-glutamyltransferase increased [Recovering/Resolving]
  - Platelet count decreased [Recovering/Resolving]
